FAERS Safety Report 9950521 (Version 1)
Quarter: 2014Q1

REPORT INFORMATION
  Report Type: Report from Study
  Country: US (occurrence: US)
  Receive Date: 20140304
  Receipt Date: 20140304
  Transmission Date: 20141002
  Serious: No
  Sender: FDA-Public Use
  Company Number: US-ABBVIE-13P-163-1066998-00

PATIENT
  Age: 62 Year
  Sex: Female

DRUGS (12)
  1. HUMIRA [Suspect]
     Indication: CROHN^S DISEASE
     Dates: start: 20121206
  2. IMURAN [Concomitant]
     Indication: CROHN^S DISEASE
  3. WELLBUTRIN [Concomitant]
     Indication: DEPRESSION
  4. TRAZODONE [Concomitant]
     Indication: PAIN
     Dosage: AT BEDTIME
  5. GEMFIBROZIL [Concomitant]
     Indication: BLOOD CHOLESTEROL
     Dosage: 600 MG DAILY
  6. SIMVASTATIN [Concomitant]
     Indication: BLOOD CHOLESTEROL
     Dosage: 20 MG DAILY
  7. COZAAR [Concomitant]
     Indication: HYPERTENSION
  8. LOSARTAN [Concomitant]
     Indication: HYPERTENSION
     Dosage: 50 MG DAILY
  9. OMEPRAZOLE [Concomitant]
     Indication: GASTROOESOPHAGEAL REFLUX DISEASE
  10. SYNTHYROID [Concomitant]
     Indication: HYPOTHYROIDISM
     Dosage: 75 MCG DAILY
  11. ELMIRON [Concomitant]
     Indication: CYSTITIS INTERSTITIAL
  12. PREMARIN [Concomitant]
     Indication: HORMONE REPLACEMENT THERAPY
     Dosage: .625 MG DAILY

REACTIONS (4)
  - Inappropriate schedule of drug administration [Not Recovered/Not Resolved]
  - Crohn^s disease [Not Recovered/Not Resolved]
  - Colonoscopy abnormal [Not Recovered/Not Resolved]
  - Crohn^s disease [Not Recovered/Not Resolved]
